FAERS Safety Report 9283280 (Version 2)
Quarter: 2013Q3

REPORT INFORMATION
  Report Type: Spontaneous
  Country: NO (occurrence: None)
  Receive Date: 20130503
  Receipt Date: 20130916
  Transmission Date: 20140515
  Serious: Yes (Life-Threatening, Hospitalization, Other)
  Sender: FDA-Public Use
  Company Number: VAL_02311_2013

PATIENT
  Age: 83 Year
  Sex: Female

DRUGS (5)
  1. METOPROLOL [Suspect]
     Indication: HYPERTENSION
     Route: 048
     Dates: end: 20130411
  2. DONEPEZIL (DONEPEZIL) [Suspect]
     Indication: DEMENTIA ALZHEIMER^S TYPE
     Route: 048
     Dates: start: 20130304, end: 20130402
  3. OVESTERIN [Concomitant]
  4. ENALAPRIL MALEATE AND HYDROCHLOROTHIAZIDE [Concomitant]
  5. ALENDRONIC ACID [Concomitant]

REACTIONS (7)
  - Bradycardia [None]
  - Nausea [None]
  - Atrioventricular block [None]
  - Chest pain [None]
  - Dyspnoea [None]
  - Asthenia [None]
  - Decreased appetite [None]
